FAERS Safety Report 7028815-4 (Version None)
Quarter: 2010Q4

REPORT INFORMATION
  Report Type: 
  Country: None (occurrence: None)
  Receive Date: 20101005
  Receipt Date: 20100928
  Transmission Date: 20110411
  Serious: No
  Sender: FDA-Public Use
  Company Number: US-B.I. PHARMACEUTICALS,INC./RIDGEFIELD-2010-BP-11023BP

PATIENT
  Sex: Female

DRUGS (3)
  1. ZANTAC 150 [Suspect]
     Indication: DYSPEPSIA
     Dosage: 300 MG
     Route: 048
     Dates: start: 20100926
  2. DICYCLOMINE [Concomitant]
     Indication: DYSPEPSIA
     Route: 048
  3. DICYCLOMINE [Concomitant]
     Indication: GASTRIC PH DECREASED

REACTIONS (2)
  - DRUG INEFFECTIVE [None]
  - NAUSEA [None]
